FAERS Safety Report 20642708 (Version 1)
Quarter: 2022Q1

REPORT INFORMATION
  Report Type: Spontaneous
  Country: US (occurrence: None)
  Receive Date: 20220325
  Receipt Date: 20220325
  Transmission Date: 20220424
  Serious: Yes (unspecified)
  Sender: FDA-Public Use
  Company Number: None

PATIENT
  Age: 62 Year
  Sex: Male
  Weight: 67.5 kg

DRUGS (25)
  1. EVUSHELD [Suspect]
     Active Substance: CILGAVIMAB\TIXAGEVIMAB
     Dosage: FREQUENCY : DAILY;?
     Route: 030
     Dates: start: 20220314, end: 20220314
  2. TACROLIMUS [Concomitant]
     Active Substance: TACROLIMUS
  3. Mycophnolate [Concomitant]
  4. PREDNISONE [Concomitant]
     Active Substance: PREDNISONE
  5. Sulfamethoxizole/Trimethaprim [Concomitant]
  6. AZITHROMYCIN [Concomitant]
     Active Substance: AZITHROMYCIN
  7. OMEPRAZOLE [Concomitant]
     Active Substance: OMEPRAZOLE
  8. SINGULAIR [Concomitant]
     Active Substance: MONTELUKAST SODIUM
  9. CRESTOR [Concomitant]
     Active Substance: ROSUVASTATIN CALCIUM
  10. CALCIUM\VITAMIN D [Concomitant]
     Active Substance: CALCIUM\VITAMIN D
  11. Magnezium [Concomitant]
  12. VITAMINS [Concomitant]
     Active Substance: VITAMINS
  13. ASPIRIN [Concomitant]
     Active Substance: ASPIRIN
  14. ELIQUIS [Concomitant]
     Active Substance: APIXABAN
  15. LEVOTHYROXINE [Concomitant]
     Active Substance: LEVOTHYROXINE
  16. REPATHA [Concomitant]
     Active Substance: EVOLOCUMAB
  17. Ropinerfole [Concomitant]
  18. ACYCLOVIR [Concomitant]
     Active Substance: ACYCLOVIR
  19. CRESEMBA [Concomitant]
     Active Substance: ISAVUCONAZONIUM SULFATE
  20. COENZYME Q10 [Concomitant]
     Active Substance: DIETARY SUPPLEMENT\UBIDECARENONE
  21. VITAMIN B COMPLEX [Concomitant]
     Active Substance: CYANOCOBALAMIN\DEXPANTHENOL\NIACINAMIDE\PYRIDOXINE HYDROCHLORIDE\RIBOFLAVIN 5^-PHOSPHATE SODIUM\THIA
  22. TAMSULOSIN [Concomitant]
     Active Substance: TAMSULOSIN
  23. PREVYMIS [Concomitant]
     Active Substance: LETERMOVIR
  24. LOSARTAN [Concomitant]
     Active Substance: LOSARTAN
  25. NEBIVOLOL [Concomitant]
     Active Substance: NEBIVOLOL

REACTIONS (2)
  - Influenza [None]
  - Lung transplant [None]

NARRATIVE: CASE EVENT DATE: 20220318
